FAERS Safety Report 8083188-3 (Version None)
Quarter: 2012Q1

REPORT INFORMATION
  Report Type: 
  Country: None (occurrence: None)
  Receive Date: 20120127
  Receipt Date: 20110215
  Transmission Date: 20120608
  Serious: No
  Sender: FDA-Public Use
  Company Number: US-ABBOTT-11P-163-0705361-00

PATIENT
  Sex: Male
  Weight: 106.69 kg

DRUGS (6)
  1. METHOTREXATE [Suspect]
     Indication: PSORIATIC ARTHROPATHY
  2. HUMIRA [Suspect]
     Indication: PSORIATIC ARTHROPATHY
     Dates: start: 20080101
  3. PREDNISONE TAB [Concomitant]
     Indication: PAIN
     Dosage: AS NEEDED FOR PAIN
  4. ALLOPURINOL [Concomitant]
     Indication: HYPERTENSION
  5. LEVOTHYROXINE SODIUM [Concomitant]
     Indication: HYPOTHYROIDISM
  6. AVALIDE [Concomitant]
     Indication: HYPERTENSION
     Dosage: 12.5/300 MG: 1 IN 1DAY

REACTIONS (3)
  - RASH [None]
  - SKIN HYPOPIGMENTATION [None]
  - PAIN [None]
